FAERS Safety Report 7549668-1 (Version None)
Quarter: 2011Q2

REPORT INFORMATION
  Report Type: 
  Country: None (occurrence: None)
  Receive Date: 20110615
  Receipt Date: 20100602
  Transmission Date: 20111010
  Serious: Yes (Other)
  Sender: FDA-Public Use
  Company Number: US-BRISTOL-MYERS SQUIBB COMPANY-15134729

PATIENT
  Age: 75 Year
  Sex: Female

DRUGS (1)
  1. MONOPRIL [Suspect]

REACTIONS (2)
  - HYPERTENSION [None]
  - PHARYNGEAL OEDEMA [None]
